FAERS Safety Report 23267008 (Version 1)
Quarter: 2023Q4

REPORT INFORMATION
  Report Type: Spontaneous
  Country: None (occurrence: US)
  Receive Date: 20231206
  Receipt Date: 20231206
  Transmission Date: 20240109
  Serious: Yes (Life-Threatening)
  Sender: FDA-Public Use
  Company Number: US-The Proactiv LLC-2149013

PATIENT
  Sex: Male

DRUGS (4)
  1. COSMETICS [Suspect]
     Active Substance: COSMETICS
     Route: 061
  2. COSMETICS [Suspect]
     Active Substance: COSMETICS
     Route: 061
  3. COSMETICS [Suspect]
     Active Substance: COSMETICS
     Route: 061
  4. PROACTIV MD ADAPALENE ACNE TREATMENT [Concomitant]
     Active Substance: ADAPALENE
     Route: 061

REACTIONS (1)
  - Anaphylactic shock [Unknown]
